FAERS Safety Report 4691189-8 (Version None)
Quarter: 2005Q2

REPORT INFORMATION
  Report Type: 
  Country: None (occurrence: None)
  Receive Date: 20050610
  Receipt Date: 20050601
  Transmission Date: 20051028
  Serious: Yes (Hospitalization)
  Sender: FDA-Public Use
  Company Number: 212109

PATIENT
  Age: 46 Year
  Sex: Male
  Weight: 95.2 kg

DRUGS (12)
  1. BEVACIZUMAB (BEVACIZUMAB) PWDR + SOLVENT,INFUSION SOLN, 100MG [Suspect]
     Indication: NON-SMALL CELL LUNG CANCER
     Dosage: 1418 MG, Q3W, INTRAVENOUS
     Route: 042
     Dates: start: 20041102, end: 20050104
  2. ERLOTINIB NOT ADMINISTERED (NO DRUG ADMINISTERED) NOT APPLICABLE [Suspect]
  3. DOCETAXEL (DOCETAXEL) [Suspect]
     Indication: NON-SMALL CELL LUNG CANCER
     Dosage: 130 MG, Q3W, INTRAVENOUS
     Route: 042
     Dates: start: 20021102, end: 20050104
  4. BEVACIZUMAB (BEVACIZUMAB) PWDR + SOLVENT,INFUSION SOLN, 100MG [Suspect]
  5. BEVACIZUMAB (BEVACIZUMAB) PWDR + SOLVENT,INFUSION SOLN, 100MG [Suspect]
  6. LIPITOR [Concomitant]
  7. LASIX [Concomitant]
  8. COREG [Concomitant]
  9. PRINIVIL [Concomitant]
  10. POTASSIUM CHLORIDE [Concomitant]
  11. AMPICILLIN [Concomitant]
  12. ZOMETA [Concomitant]

REACTIONS (28)
  - ABDOMINAL PAIN [None]
  - ABDOMINAL PAIN UPPER [None]
  - BACK PAIN [None]
  - BACTERIA SPUTUM IDENTIFIED [None]
  - BACTERIA URINE IDENTIFIED [None]
  - BACTERIAL INFECTION [None]
  - BLOOD ALBUMIN DECREASED [None]
  - BLOOD LACTATE DEHYDROGENASE INCREASED [None]
  - CARCINOEMBRYONIC ANTIGEN INCREASED [None]
  - COMPUTERISED TOMOGRAM ABDOMEN ABNORMAL [None]
  - DRUG INEFFECTIVE [None]
  - ESCHERICHIA INFECTION [None]
  - ESCHERICHIA URINARY TRACT INFECTION [None]
  - FATIGUE [None]
  - GASTROINTESTINAL DISORDER [None]
  - GASTROINTESTINAL PERFORATION [None]
  - HAEMOGLOBIN DECREASED [None]
  - ILEUS [None]
  - INFECTION [None]
  - MALIGNANT NEOPLASM PROGRESSION [None]
  - NON-SMALL CELL LUNG CANCER [None]
  - PANCREATIC MASS [None]
  - PLATELET COUNT DECREASED [None]
  - POSITRON EMISSION TOMOGRAM ABNORMAL [None]
  - PRODUCTIVE COUGH [None]
  - PROTEIN TOTAL DECREASED [None]
  - RASH [None]
  - URINARY RETENTION [None]
